FAERS Safety Report 9856046 (Version 2)
Quarter: 2014Q1

REPORT INFORMATION
  Report Type: Report from Study
  Country: BR (occurrence: BR)
  Receive Date: 20140130
  Receipt Date: 20140228
  Transmission Date: 20141002
  Serious: Yes (Other)
  Sender: FDA-Public Use
  Company Number: PHHY2014BR010334

PATIENT
  Age: 90 Year
  Sex: Female
  Weight: 64 kg

DRUGS (13)
  1. EXELON PATCH [Suspect]
     Indication: DEMENTIA ALZHEIMER^S TYPE
     Dosage: 9.5 MG, DAILY (18MG/PATCH 10 CM2)
     Route: 062
  2. EXELON PATCH [Suspect]
     Dosage: 13.3 MG, DAILY (27MG/PATCH 15 CM2)
     Route: 062
     Dates: end: 2013
  3. EXELON PATCH [Suspect]
     Dosage: 9.5 MG, DAILY (18 MG/ PATCH 10 CM2)
     Route: 062
  4. ALOIS [Concomitant]
     Indication: DEMENTIA ALZHEIMER^S TYPE
     Dosage: 2 DF, DAILY
     Route: 048
  5. MIRTAZAPINE [Concomitant]
     Indication: DEMENTIA ALZHEIMER^S TYPE
     Dosage: 1 DF, DAILY
     Route: 048
  6. PANTOPRAZOLE [Concomitant]
     Indication: PROPHYLAXIS
     Dosage: 1 DF, DAILY
     Route: 048
  7. JANUVIA [Concomitant]
     Indication: DIABETES PROPHYLAXIS
     Dosage: 1 DF, DAILY
     Route: 048
  8. VYTORIN [Concomitant]
     Indication: BLOOD CHOLESTEROL ABNORMAL
     Dosage: 1 DF, QOD
     Route: 048
  9. RIVOTRIL [Concomitant]
     Indication: DEMENTIA ALZHEIMER^S TYPE
     Dosage: 1 DF, DAILY
     Route: 048
  10. LEXAPRO [Concomitant]
     Indication: DEMENTIA ALZHEIMER^S TYPE
     Dosage: 1 DF, DAILY
     Route: 048
  11. NEOTIAPIM [Concomitant]
     Indication: DEMENTIA ALZHEIMER^S TYPE
     Dosage: 1 DF, DAILY
     Route: 048
  12. GLIFAGE [Concomitant]
     Indication: DIABETES MELLITUS
     Dosage: 1 DF, DAILY
     Route: 048
  13. LACTOSE [Concomitant]
     Dosage: UNK UKN, UNK

REACTIONS (11)
  - Diabetes mellitus [Unknown]
  - Femur fracture [Recovered/Resolved]
  - Fall [Recovered/Resolved]
  - Chills [Recovered/Resolved]
  - Retching [Recovered/Resolved]
  - Eating disorder [Unknown]
  - Malaise [Unknown]
  - Dizziness [Recovered/Resolved]
  - Cold sweat [Recovered/Resolved]
  - Asthenia [Recovered/Resolved]
  - Expired drug administered [Unknown]
